FAERS Safety Report 11707530 (Version 1)
Quarter: 2015Q4

REPORT INFORMATION
  Report Type: Spontaneous
  Country: US (occurrence: US)
  Receive Date: 20151104
  Receipt Date: 20151104
  Transmission Date: 20160304
  Serious: No
  Sender: FDA-Public Use
  Company Number: US-ELI_LILLY_AND_COMPANY-US201102006730

PATIENT
  Age: 59 Year
  Sex: Female

DRUGS (1)
  1. FORTEO [Suspect]
     Active Substance: TERIPARATIDE
     Indication: OSTEOPOROSIS
     Dosage: 20 UG, DAILY (1/D)
     Dates: start: 20110214, end: 20110217

REACTIONS (13)
  - Influenza like illness [Recovering/Resolving]
  - Feeling abnormal [Recovering/Resolving]
  - Asthenia [Recovering/Resolving]
  - Pain [Recovering/Resolving]
  - Frustration [Recovering/Resolving]
  - Head discomfort [Recovering/Resolving]
  - Hunger [Recovering/Resolving]
  - Adverse drug reaction [Recovering/Resolving]
  - Tinnitus [Recovering/Resolving]
  - Diarrhoea [Recovering/Resolving]
  - Mental impairment [Recovering/Resolving]
  - Fatigue [Recovering/Resolving]
  - Headache [Recovering/Resolving]

NARRATIVE: CASE EVENT DATE: 20110214
